FAERS Safety Report 6914285-0 (Version None)
Quarter: 2010Q3

REPORT INFORMATION
  Report Type: 
  Country: None (occurrence: None)
  Receive Date: 20100809
  Receipt Date: 20100729
  Transmission Date: 20110219
  Serious: Yes (Death)
  Sender: FDA-Public Use
  Company Number: B0666747A

PATIENT
  Sex: Male

DRUGS (2)
  1. PAXIL [Suspect]
     Indication: DEPRESSED MOOD
     Dosage: 10MG PER DAY
     Route: 048
     Dates: start: 20100409, end: 20100423
  2. GANATON [Concomitant]
     Indication: PROPHYLAXIS
     Dosage: 50MG PER DAY
     Route: 048
     Dates: start: 20100409, end: 20100423

REACTIONS (2)
  - ACTIVATION SYNDROME [None]
  - COMPLETED SUICIDE [None]
